FAERS Safety Report 10208073 (Version 1)
Quarter: 2014Q2

REPORT INFORMATION
  Report Type: Spontaneous
  Country: RU (occurrence: RU)
  Receive Date: 20140530
  Receipt Date: 20140530
  Transmission Date: 20141212
  Serious: Yes (Other)
  Sender: FDA-Public Use
  Company Number: PHHY2014RU066049

PATIENT
  Sex: Female

DRUGS (2)
  1. FORADIL COMBI [Suspect]
     Indication: ASTHMA
     Dosage: UNK
  2. FORADIL COMBI [Suspect]
     Indication: CHRONIC OBSTRUCTIVE PULMONARY DISEASE

REACTIONS (4)
  - Convulsion [Recovering/Resolving]
  - Muscle spasms [Recovering/Resolving]
  - Dysphonia [Recovering/Resolving]
  - Abdominal pain [Recovering/Resolving]
